FAERS Safety Report 14770578 (Version 2)
Quarter: 2018Q3

REPORT INFORMATION
  Report Type: Spontaneous
  Country: US (occurrence: US)
  Receive Date: 20180417
  Receipt Date: 20180706
  Transmission Date: 20181010
  Serious: Yes (Other)
  Sender: FDA-Public Use
  Company Number: US-PFIZER INC-2018150079

PATIENT
  Sex: Female

DRUGS (3)
  1. GENOTROPIN [Suspect]
     Active Substance: SOMATROPIN
     Indication: PITUITARY TUMOUR
     Dosage: UNK
     Dates: end: 201709
  2. GENOTROPIN [Suspect]
     Active Substance: SOMATROPIN
     Indication: FIBROMYALGIA
     Dosage: 0.6 MG, 1X/DAY
     Dates: start: 2016
  3. GENOTROPIN [Suspect]
     Active Substance: SOMATROPIN
     Indication: HYPOTHYROIDISM
     Dosage: UNK
     Dates: start: 201712

REACTIONS (5)
  - Periarthritis [Not Recovered/Not Resolved]
  - Rotator cuff syndrome [Not Recovered/Not Resolved]
  - Hand fracture [Not Recovered/Not Resolved]
  - Upper limb fracture [Not Recovered/Not Resolved]
  - Drug dose omission [Recovered/Resolved]
